FAERS Safety Report 23282526 (Version 2)
Quarter: 2024Q1

REPORT INFORMATION
  Report Type: Report from Study
  Country: US (occurrence: US)
  Receive Date: 20231211
  Receipt Date: 20240229
  Transmission Date: 20240410
  Serious: Yes (Death)
  Sender: FDA-Public Use
  Company Number: US-ABBVIE-5531958

PATIENT
  Age: 28 Year
  Sex: Male
  Weight: 68 kg

DRUGS (3)
  1. SAPHRIS [Suspect]
     Active Substance: ASENAPINE MALEATE
     Indication: Bipolar disorder
     Dosage: FORM STRENGTH: 5 MILLIGRAM?STOP DATE TEXT: BEFORE SWITCHED FREQUENCY
     Route: 048
     Dates: start: 202311, end: 202311
  2. SAPHRIS [Suspect]
     Active Substance: ASENAPINE MALEATE
     Indication: Bipolar disorder
     Dosage: STARTED AROUND 16 OR 17 NOV 2023?FORM STRENGTH: 5 MILLIGRAM
     Route: 060
     Dates: start: 202311, end: 20231201
  3. SAPHRIS [Suspect]
     Active Substance: ASENAPINE MALEATE
     Indication: Bipolar disorder
     Dosage: FORM STRENGTH: 5 MILLIGRAM
     Route: 048

REACTIONS (8)
  - Suicidal ideation [Fatal]
  - Musculoskeletal stiffness [Fatal]
  - Completed suicide [Fatal]
  - Restless legs syndrome [Fatal]
  - Akathisia [Fatal]
  - Nightmare [Fatal]
  - Unevaluable event [Unknown]
  - Feeling of despair [Fatal]

NARRATIVE: CASE EVENT DATE: 20231122
